FAERS Safety Report 4396729-4 (Version None)
Quarter: 2004Q3

REPORT INFORMATION
  Report Type: 
  Country: None (occurrence: None)
  Receive Date: 20040713
  Receipt Date: 20040713
  Transmission Date: 20050211
  Serious: Yes (Hospitalization)
  Sender: FDA-Public Use
  Company Number: None

PATIENT
  Age: 47 Year
  Sex: Male
  Weight: 113.4 kg

DRUGS (1)
  1. NITROFURANTOIN 50MG MACROCRYST [Suspect]
     Indication: URINARY TRACT INFECTION
     Dosage: 200MG, 50MG QID, ORAL
     Route: 048
     Dates: start: 20040507, end: 20040517

REACTIONS (1)
  - HEPATIC ENZYME INCREASED [None]
